FAERS Safety Report 17318902 (Version 9)
Quarter: 2021Q3

REPORT INFORMATION
  Report Type: Spontaneous
  Country: US (occurrence: US)
  Receive Date: 20200124
  Receipt Date: 20210921
  Transmission Date: 20211014
  Serious: Yes (Hospitalization, Other)
  Sender: FDA-Public Use
  Company Number: US-BIOMARINAP-US-2020-128014

PATIENT
  Age: 2 Year
  Sex: Female

DRUGS (8)
  1. HYDROCORTISONE. [Suspect]
     Active Substance: HYDROCORTISONE
     Indication: PRODUCT USED FOR UNKNOWN INDICATION
     Route: 065
  2. DIPHENHYDRAMINE. [Concomitant]
     Active Substance: DIPHENHYDRAMINE
     Indication: PREMEDICATION
     Dosage: UNK
     Dates: start: 20190827
  3. ALDURAZYME [Suspect]
     Active Substance: LARONIDASE
     Indication: MUCOPOLYSACCHARIDOSIS I
     Dosage: 8.7 MILLIGRAM, QW
     Route: 041
     Dates: start: 20190827
  4. ACETAMINOPHEN. [Concomitant]
     Active Substance: ACETAMINOPHEN
     Indication: PREMEDICATION
     Dosage: UNK
     Dates: start: 20190827
  5. METHYLPREDNISOLONE. [Concomitant]
     Active Substance: METHYLPREDNISOLONE
     Indication: PREMEDICATION
     Dosage: UNK
     Dates: start: 20190827
  6. TEROID [Concomitant]
     Indication: PRODUCT USED FOR UNKNOWN INDICATION
  7. ALDURAZYME [Suspect]
     Active Substance: LARONIDASE
     Dosage: 0.58 MILLIGRAM/KILOGRAM, QW
     Route: 041
  8. ALDURAZYME [Suspect]
     Active Substance: LARONIDASE
     Dosage: 8.7 MILLIGRAM, QW
     Route: 041

REACTIONS (14)
  - Procedural complication [Recovered/Resolved]
  - Therapeutic aspiration [Recovered/Resolved]
  - Muscular weakness [Unknown]
  - Fatigue [Recovering/Resolving]
  - Mitral valve prolapse [Unknown]
  - Pain in extremity [Unknown]
  - Myocardial oedema [Unknown]
  - Musculoskeletal stiffness [Unknown]
  - Central venous catheterisation [Recovered/Resolved]
  - Diarrhoea [Unknown]
  - Vomiting [Unknown]
  - Autoimmune haemolytic anaemia [Recovering/Resolving]
  - Abnormal behaviour [Recovering/Resolving]
  - Middle insomnia [Unknown]

NARRATIVE: CASE EVENT DATE: 20200107
